FAERS Safety Report 6040227-9 (Version None)
Quarter: 2009Q1

REPORT INFORMATION
  Report Type: 
  Country: None (occurrence: None)
  Receive Date: 20090116
  Receipt Date: 20080117
  Transmission Date: 20090719
  Serious: No
  Sender: FDA-Public Use
  Company Number: US-BRISTOL-MYERS SQUIBB COMPANY-14046809

PATIENT
  Age: 15 Year
  Sex: Male

DRUGS (4)
  1. ABILIFY [Suspect]
     Indication: MILD MENTAL RETARDATION
     Route: 048
  2. ABILIFY [Suspect]
     Indication: POST-TRAUMATIC STRESS DISORDER
     Route: 048
  3. ABILIFY [Suspect]
     Indication: PSYCHOTIC DISORDER
     Route: 048
  4. ABILIFY [Suspect]
     Indication: IRRITABILITY
     Route: 048

REACTIONS (1)
  - TARDIVE DYSKINESIA [None]
